FAERS Safety Report 6931263-6 (Version None)
Quarter: 2010Q3

REPORT INFORMATION
  Report Type: 
  Country: None (occurrence: None)
  Receive Date: 20100816
  Receipt Date: 20100804
  Transmission Date: 20110219
  Serious: Yes (Other)
  Sender: FDA-Public Use
  Company Number: 2010SP042409

PATIENT
  Age: 25 Year
  Sex: Female
  Weight: 57.3 kg

DRUGS (3)
  1. NOVIAL (DESOGESTREL/ETHINYLESTRADIOL / 00570801/) [Suspect]
     Dates: end: 20100301
  2. NOVIAL (DESOGESTREL/ETHINYLESTRADIOL / 00570801/) [Suspect]
     Dates: start: 20100724
  3. DICETEL /00505101/ (CON.) [Concomitant]

REACTIONS (8)
  - ABDOMINAL PAIN [None]
  - CHLOASMA [None]
  - COLITIS [None]
  - HEADACHE [None]
  - INSOMNIA [None]
  - PHARYNGITIS [None]
  - TACHYCARDIA [None]
  - VAGINAL INFECTION [None]
